FAERS Safety Report 6416521-6 (Version None)
Quarter: 2009Q4

REPORT INFORMATION
  Report Type: 
  Country: None (occurrence: None)
  Receive Date: 20091027
  Receipt Date: 20091020
  Transmission Date: 20100525
  Serious: Yes (Hospitalization)
  Sender: FDA-Public Use
  Company Number: PHHY2009CA16620

PATIENT
  Sex: Female

DRUGS (5)
  1. SANDOSTATIN LAR [Suspect]
     Indication: ACROMEGALY
     Dosage: 10 MG, QMO
     Route: 030
     Dates: start: 20090325
  2. RAMIPRIL [Concomitant]
     Dosage: 5 MG, QD
     Route: 048
     Dates: start: 20091008
  3. METOPROLOL [Concomitant]
     Dosage: 50 MG, BID
  4. HYDROCHLOROTHIAZIDE [Concomitant]
     Dosage: 75 MG /DAY
  5. ELTROXIN [Concomitant]
     Dosage: UNK
     Dates: start: 20090501

REACTIONS (5)
  - ALOPECIA [None]
  - HAIR DISORDER [None]
  - HAIR GROWTH ABNORMAL [None]
  - THYROID CANCER [None]
  - THYROIDECTOMY [None]
